FAERS Safety Report 8427324-5 (Version None)
Quarter: 2012Q2

REPORT INFORMATION
  Report Type: 
  Country: None (occurrence: None)
  Receive Date: 20120611
  Receipt Date: 20120531
  Transmission Date: 20120825
  Serious: Yes (Hospitalization)
  Sender: FDA-Public Use
  Company Number: BR-ASTRAZENECA-2012SE36747

PATIENT
  Age: 50 Year
  Sex: Male

DRUGS (1)
  1. BRILINTA [Suspect]
     Indication: ISCHAEMIC HEART DISEASE PROPHYLAXIS
     Route: 048
     Dates: start: 20120501, end: 20120501

REACTIONS (2)
  - MYOCARDIAL INFARCTION [None]
  - DRUG DOSE OMISSION [None]
